FAERS Safety Report 12248613 (Version 1)
Quarter: 2016Q2

REPORT INFORMATION
  Report Type: Spontaneous
  Country: US (occurrence: US)
  Receive Date: 20160408
  Receipt Date: 20160408
  Transmission Date: 20160815
  Serious: Yes (Other)
  Sender: FDA-Public Use
  Company Number: US-PFIZER INC-2016194432

PATIENT
  Age: 95 Year
  Sex: Male
  Weight: 67.59 kg

DRUGS (1)
  1. XANAX [Suspect]
     Active Substance: ALPRAZOLAM
     Indication: ANXIETY
     Dosage: 0.5 MG (HALF A PILL 3 TO 4 TIMES A DAY)

REACTIONS (2)
  - Drug dependence [Unknown]
  - Muscular weakness [Unknown]
